FAERS Safety Report 7675744-9 (Version None)
Quarter: 2011Q3

REPORT INFORMATION
  Report Type: 
  Country: None (occurrence: None)
  Receive Date: 20110810
  Receipt Date: 20110527
  Transmission Date: 20111222
  Serious: No
  Sender: FDA-Public Use
  Company Number: US-TYCO HEALTHCARE/MALLINCKRODT-T201101164

PATIENT
  Sex: Female

DRUGS (1)
  1. PENNSAID [Suspect]
     Dosage: UNK
     Route: 061
     Dates: start: 20110501, end: 20110501

REACTIONS (1)
  - SWOLLEN TONGUE [None]
